FAERS Safety Report 4378041-2 (Version None)
Quarter: 2004Q2

REPORT INFORMATION
  Report Type: 
  Country: None (occurrence: None)
  Receive Date: 20040608
  Receipt Date: 20040527
  Transmission Date: 20050107
  Serious: Yes (Death)
  Sender: FDA-Public Use
  Company Number: 04P-083-0262392-01

PATIENT
  Age: 73 Year
  Sex: Male

DRUGS (10)
  1. HUMIRA (ADALIMUMAB) (ADALIMUMAB) [Suspect]
     Indication: RHEUMATOID ARTHRITIS
     Dosage: 1 IN 1 WK, SUBCUTANEOUS
     Route: 058
     Dates: start: 20010110, end: 20040221
  2. SPIRONOLACTONE [Concomitant]
  3. FUROSEMIDE [Concomitant]
  4. PANTOPRAZOLE [Concomitant]
  5. GLYCERYL TRINITRATE [Concomitant]
  6. ASPIRIN [Concomitant]
  7. ACECLOFENAC [Concomitant]
  8. PENTOXIFYLLINE [Concomitant]
  9. BROTIZOLAM [Concomitant]
  10. PREDNISONE [Concomitant]

REACTIONS (4)
  - CARDIAC FAILURE [None]
  - MYOCARDIAL INFARCTION [None]
  - MYOCARDIAL ISCHAEMIA [None]
  - SYNCOPE [None]
